FAERS Safety Report 6669010-8 (Version None)
Quarter: 2010Q2

REPORT INFORMATION
  Report Type: 
  Country: None (occurrence: None)
  Receive Date: 20100406
  Receipt Date: 20100401
  Transmission Date: 20101027
  Serious: Yes (Other)
  Sender: FDA-Public Use
  Company Number: US-BAYER-201018345NA

PATIENT
  Age: 40 Year
  Sex: Female

DRUGS (2)
  1. MIRENA [Suspect]
     Indication: CONTRACEPTION
     Dosage: FREQUENCY: CONTINUOUS
     Route: 015
     Dates: start: 20091001, end: 20100301
  2. SUDAFED 12 HOUR [Concomitant]
     Indication: INFLUENZA
     Route: 065

REACTIONS (2)
  - HEADACHE [None]
  - HYPERTENSIVE CRISIS [None]
